FAERS Safety Report 13472417 (Version 1)
Quarter: 2017Q2

REPORT INFORMATION
  Report Type: Spontaneous
  Country: US (occurrence: US)
  Receive Date: 20170422
  Receipt Date: 20170422
  Transmission Date: 20170830
  Serious: Yes (Disabling)
  Sender: FDA-Public Use
  Company Number: None

PATIENT
  Age: 65 Year
  Sex: Male
  Weight: 72 kg

DRUGS (6)
  1. MAGNESIUM [Concomitant]
     Active Substance: MAGNESIUM
  2. HYDROCHLOROTHIAZIDE. [Concomitant]
     Active Substance: HYDROCHLOROTHIAZIDE
  3. VITAMIN C [Concomitant]
     Active Substance: ASCORBIC ACID
  4. CIPROFLAXIN 500 MG [Suspect]
     Active Substance: CIPROFLOXACIN
     Indication: GASTROINTESTINAL INFECTION
     Dosage: ?          QUANTITY:6 TABLET(S); EVERY 12 HOURS ORAL?
     Route: 048
     Dates: start: 20161121, end: 20161123
  5. TIMOLOL. [Concomitant]
     Active Substance: TIMOLOL
  6. COQ10 [Concomitant]
     Active Substance: UBIDECARENONE

REACTIONS (3)
  - Glaucoma [None]
  - Arthralgia [None]
  - Rheumatoid factor increased [None]

NARRATIVE: CASE EVENT DATE: 20161127
